FAERS Safety Report 22096097 (Version 1)
Quarter: 2023Q1

REPORT INFORMATION
  Report Type: Report from Study
  Country: US (occurrence: None)
  Receive Date: 20230315
  Receipt Date: 20230315
  Transmission Date: 20230418
  Serious: Yes (Other)
  Sender: FDA-Public Use
  Company Number: 2023A057022

PATIENT
  Sex: Male

DRUGS (1)
  1. BRILINTA [Suspect]
     Active Substance: TICAGRELOR
     Route: 048

REACTIONS (7)
  - Cerebrovascular accident [Unknown]
  - Malaise [Unknown]
  - Blood cholesterol increased [Unknown]
  - Speech disorder [Unknown]
  - Gait disturbance [Unknown]
  - Drug intolerance [Unknown]
  - Product dose omission issue [Unknown]
